FAERS Safety Report 8780530 (Version 1)
Quarter: 2012Q4

REPORT INFORMATION
  Report Type: 
  Country: US (occurrence: US)
  Receive Date: 20120913
  Receipt Date: 20120913
  Transmission Date: 20130627
  Serious: No
  Sender: FDA-Public Use
  Company Number: US-PFIZER INC-2012224365

PATIENT
  Age: 68 Year
  Sex: Male

DRUGS (3)
  1. SUTENT [Suspect]
     Indication: RENAL CANCER
     Dosage: 50 mg, 1x/day
     Dates: end: 20120907
  2. ALPRAZOLAM [Concomitant]
     Dosage: UNK
  3. PRILOSEC [Concomitant]
     Dosage: UNK

REACTIONS (3)
  - Diarrhoea [Unknown]
  - Asthenia [Unknown]
  - Nervousness [Unknown]
